FAERS Safety Report 6326829-0 (Version None)
Quarter: 2009Q3

REPORT INFORMATION
  Report Type: 
  Country: None (occurrence: None)
  Receive Date: 20090821
  Receipt Date: 20090814
  Transmission Date: 20100115
  Serious: Yes (Death)
  Sender: FDA-Public Use
  Company Number: OSCN-NO-0908L-0397

PATIENT
  Age: 63 Year
  Sex: Male

DRUGS (1)
  1. OMNISCAN [Suspect]
     Indication: DRUG USE FOR UNKNOWN INDICATION

REACTIONS (23)
  - ARTERIOVENOUS FISTULA [None]
  - ASTHENIA [None]
  - BACTERIAL TOXAEMIA [None]
  - BALANCE DISORDER [None]
  - COLITIS ISCHAEMIC [None]
  - DECREASED APPETITE [None]
  - DIALYSIS [None]
  - FIBROSIS [None]
  - INTERMITTENT CLAUDICATION [None]
  - MALNUTRITION [None]
  - NAUSEA [None]
  - NEPHROANGIOSCLEROSIS [None]
  - NEPHROPATHY [None]
  - PANCREATITIS [None]
  - PERICARDIAL FIBROSIS [None]
  - PLEURAL EFFUSION [None]
  - PLEURISY [None]
  - RENAL ATROPHY [None]
  - RENAL FAILURE CHRONIC [None]
  - TESTICULAR ATROPHY [None]
  - THROMBOSIS [None]
  - VOMITING [None]
  - WEIGHT DECREASED [None]
